FAERS Safety Report 9212761 (Version 1)
Quarter: 2013Q1

REPORT INFORMATION
  Report Type: Spontaneous
  Country: GB (occurrence: None)
  Receive Date: 20120823
  Receipt Date: 20120823
  Transmission Date: 20140127
  Serious: Yes (Life-Threatening)
  Sender: FDA-Public Use
  Company Number: 2012-00708

PATIENT
  Age: 54 Year
  Sex: Male
  Weight: 128.1 kg

DRUGS (8)
  1. QUETIAPINE (UNKNOWN) [Suspect]
     Indication: PRODUCT USED FOR UNKNOWN INDICATION
     Dosage: 300 MG (300 MG, 1 IN 1 D), ORAL
     Route: 048
  2. DESLORATADINE [Suspect]
     Indication: PRODUCT USED FOR UNKNOWN INDICATION
     Dosage: 5 MG, (5MG 1 IN 1 D) , ORAL?
     Route: 048
  3. AMLODIPINE (UNKNOWN) [Suspect]
     Indication: PRODUCT USED FOR UNKNOWN INDICATION
     Dosage: 10 MG (10 MG, 1 IN 1 D), ORAL
     Route: 048
  4. CODEINE [Suspect]
     Indication: PRODUCT USED FOR UNKNOWN INDICATION
     Dosage: 240 MG (60 MG, 4 IN 1 D) , ORAL
     Route: 048
  5. DABIGATRAN [Suspect]
     Indication: THROMBOSIS PROPHYLAXIS
     Route: 048
     Dates: start: 20120327, end: 20120422
  6. PARACETAMOL (UNKNOWN) [Suspect]
     Indication: PRODUCT USED FOR UNKNOWN INDICATION
  7. LITHIUM CARBONATE + LITHIUM CITRATE (PRIADEL) (UNKNOWN) [Suspect]
     Indication: PRODUCT USED FOR UNKNOWN INDICATION
     Dosage: 400 MG (400 MG, 1 IN 1 D), ORAL
     Route: 048
  8. SENNA [Suspect]
     Indication: PRODUCT USED FOR UNKNOWN INDICATION
     Dosage: 7.5 MG (7.5 MG, 1 IN 1 D) , ORAL
     Route: 048

REACTIONS (1)
  - Deep vein thrombosis [None]
